FAERS Safety Report 21111006 (Version 1)
Quarter: 2022Q3

REPORT INFORMATION
  Report Type: Spontaneous
  Country: US (occurrence: US)
  Receive Date: 20220721
  Receipt Date: 20220721
  Transmission Date: 20221027
  Serious: No
  Sender: FDA-Public Use
  Company Number: US-PERRIGO-21US030121

PATIENT
  Age: 35 Year
  Sex: Male
  Weight: 79.365 kg

DRUGS (3)
  1. MINOXIDIL [Suspect]
     Active Substance: MINOXIDIL
     Indication: Alopecia
     Dosage: 1 ML, BID
     Route: 061
     Dates: start: 202107, end: 202109
  2. FINASTERIDE [Suspect]
     Active Substance: FINASTERIDE
     Indication: Alopecia
     Dosage: UNK, UNK
     Route: 048
     Dates: start: 202107, end: 202109
  3. BIOTIN [Suspect]
     Active Substance: BIOTIN
     Indication: Alopecia
     Dosage: UNK, UNK
     Route: 061
     Dates: start: 202107, end: 202109

REACTIONS (1)
  - Dark circles under eyes [Recovered/Resolved]

NARRATIVE: CASE EVENT DATE: 20210701
